FAERS Safety Report 13285738 (Version 4)
Quarter: 2017Q4

REPORT INFORMATION
  Report Type: Spontaneous
  Country: US (occurrence: US)
  Receive Date: 20170301
  Receipt Date: 20171215
  Transmission Date: 20180320
  Serious: Yes (Hospitalization, Other)
  Sender: FDA-Public Use
  Company Number: US-GILEAD-2017-0259770

PATIENT
  Age: 58 Year
  Sex: Male
  Weight: 126.98 kg

DRUGS (1)
  1. HARVONI [Suspect]
     Active Substance: LEDIPASVIR\SOFOSBUVIR
     Indication: PRODUCT USED FOR UNKNOWN INDICATION
     Dosage: UNK
     Route: 065
     Dates: end: 20170130

REACTIONS (12)
  - Neuralgia [Not Recovered/Not Resolved]
  - Hemiplegia [Unknown]
  - Gastrointestinal disorder [Unknown]
  - Insomnia [Unknown]
  - Blood disorder [Unknown]
  - Mononeuropathy multiplex [Not Recovered/Not Resolved]
  - Spinal pain [Unknown]
  - Pain [Recovered/Resolved]
  - Neuropathy peripheral [Unknown]
  - Eye disorder [Unknown]
  - Pyrexia [Unknown]
  - Chills [Unknown]

NARRATIVE: CASE EVENT DATE: 201701
